FAERS Safety Report 14017293 (Version 3)
Quarter: 2017Q4

REPORT INFORMATION
  Report Type: Spontaneous
  Country: CN (occurrence: CN)
  Receive Date: 20170927
  Receipt Date: 20171018
  Transmission Date: 20180321
  Serious: Yes (Hospitalization)
  Sender: FDA-Public Use
  Company Number: CN-PFIZER INC-2017410554

PATIENT
  Age: 50 Year
  Sex: Male

DRUGS (2)
  1. VENLAFAXINE HCL [Suspect]
     Active Substance: VENLAFAXINE HYDROCHLORIDE
     Indication: SOMATIC SYMPTOM DISORDER
     Dosage: 225 MG, DAILY
  2. PALIPERIDONE. [Interacting]
     Active Substance: PALIPERIDONE
     Indication: SOMATIC SYMPTOM DISORDER
     Dosage: 3 MG, DAILY

REACTIONS (3)
  - Dystonia [Recovering/Resolving]
  - Drug interaction [Recovering/Resolving]
  - Rash [Recovered/Resolved]
